FAERS Safety Report 23130420 (Version 1)
Quarter: 2023Q4

REPORT INFORMATION
  Report Type: Spontaneous
  Country: US (occurrence: US)
  Receive Date: 20231031
  Receipt Date: 20231031
  Transmission Date: 20240110
  Serious: Yes (Other)
  Sender: FDA-Public Use
  Company Number: US-ABBVIE-5474859

PATIENT
  Age: 75 Year
  Sex: Female
  Weight: 57 kg

DRUGS (11)
  1. CREON [Suspect]
     Active Substance: PANCRELIPASE AMYLASE\PANCRELIPASE LIPASE\PANCRELIPASE PROTEASE
     Indication: Pancreatic failure
     Dosage: FORM STRENGTH: 24000 UNITS?FREQUENCY TEXT: 2 CAPS EACH MEAL 1 WITH SNACK?START DATE TEXT: AT LEAS...
     Route: 048
     Dates: start: 2019, end: 2023
  2. CREON [Suspect]
     Active Substance: PANCRELIPASE AMYLASE\PANCRELIPASE LIPASE\PANCRELIPASE PROTEASE
     Indication: Pancreatic failure
     Dosage: FORM STRENGTH: 24000 UNITS?FREQUENCY TEXT: 4 CAPS EACH MEAL 2 CAPS WITH SNACK
     Route: 048
     Dates: start: 2023
  3. PREDNISONE [Concomitant]
     Active Substance: PREDNISONE
     Indication: Product used for unknown indication
  4. METHENAMINE [Concomitant]
     Active Substance: METHENAMINE
     Indication: Prophylaxis urinary tract infection
  5. BENADRYL [Concomitant]
     Active Substance: DIPHENHYDRAMINE HYDROCHLORIDE
     Indication: Product used for unknown indication
  6. IMODIUM [Concomitant]
     Active Substance: LOPERAMIDE HYDROCHLORIDE
     Indication: Product used for unknown indication
     Dosage: AS NEEDED
  7. MYRBETRIQ [Concomitant]
     Active Substance: MIRABEGRON
     Indication: Pollakiuria
  8. LEVOTHYROXINE [Concomitant]
     Active Substance: LEVOTHYROXINE
     Indication: Hypothyroidism
     Dosage: 12.5 MCG DAILY
  9. ATIVAN [Concomitant]
     Active Substance: LORAZEPAM
     Indication: Nausea
     Dosage: AS NEEDED
  10. PROPRANOLOL [Concomitant]
     Active Substance: PROPRANOLOL HYDROCHLORIDE
     Indication: Tremor
  11. OMEPRAZOLE [Concomitant]
     Active Substance: OMEPRAZOLE
     Indication: Gastrooesophageal reflux disease
     Dosage: 20 MG

REACTIONS (5)
  - Small intestinal resection [Unknown]
  - Diarrhoea [Recovering/Resolving]
  - Pancreatic enzymes decreased [Recovering/Resolving]
  - Pancreatic carcinoma [Not Recovered/Not Resolved]
  - Cholecystectomy [Unknown]

NARRATIVE: CASE EVENT DATE: 20220606
